FAERS Safety Report 8152785-9 (Version None)
Quarter: 2012Q1

REPORT INFORMATION
  Report Type: 
  Country: None (occurrence: None)
  Receive Date: 20120221
  Receipt Date: 20120215
  Transmission Date: 20120608
  Serious: Yes (Death, Other)
  Sender: FDA-Public Use
  Company Number: GB-JNJFOC-20120208371

PATIENT
  Sex: Female

DRUGS (2)
  1. DOXORUBICIN HCL [Suspect]
     Indication: OVARIAN CANCER RECURRENT
     Route: 042
  2. DOXORUBICIN HCL [Suspect]
     Indication: BREAST CANCER
     Route: 042

REACTIONS (12)
  - FATIGUE [None]
  - URINARY TRACT INFECTION [None]
  - ABDOMINAL PAIN [None]
  - CONSTIPATION [None]
  - DEATH [None]
  - PALMAR-PLANTAR ERYTHRODYSAESTHESIA SYNDROME [None]
  - ASTHENIA [None]
  - RASH [None]
  - DIARRHOEA [None]
  - STOMATITIS [None]
  - VOMITING [None]
  - NAUSEA [None]
